FAERS Safety Report 7547056-5 (Version None)
Quarter: 2011Q2

REPORT INFORMATION
  Report Type: 
  Country: None (occurrence: None)
  Receive Date: 20110614
  Receipt Date: 20110526
  Transmission Date: 20111010
  Serious: No
  Sender: FDA-Public Use
  Company Number: US-B.I. PHARMACEUTICALS,INC./RIDGEFIELD-2011-BP-12441BP

PATIENT
  Age: 50 Year
  Sex: Male

DRUGS (5)
  1. AZILECT [Concomitant]
     Indication: PARKINSON'S DISEASE
  2. COMTAN [Concomitant]
     Indication: PARKINSON'S DISEASE
  3. AMANTADINE HCL [Concomitant]
     Indication: PARKINSON'S DISEASE
  4. MIRAPEX [Suspect]
     Indication: PARKINSON'S DISEASE
     Dosage: 4.5 MG
     Route: 048
     Dates: start: 20091001
  5. SINEMET [Concomitant]
     Indication: PARKINSON'S DISEASE

REACTIONS (2)
  - ON AND OFF PHENOMENON [None]
  - DRUG EFFECT DECREASED [None]
